FAERS Safety Report 8708963 (Version 3)
Quarter: 2012Q4

REPORT INFORMATION
  Report Type: 
  Country: BR (occurrence: BR)
  Receive Date: 20120806
  Receipt Date: 20121011
  Transmission Date: 20130627
  Serious: Yes (Other)
  Sender: FDA-Public Use
  Company Number: BR-PFIZER INC-2012185670

PATIENT
  Age: 75 Year
  Sex: Female
  Weight: 45 kg

DRUGS (4)
  1. XALATAN [Suspect]
     Indication: GLAUCOMA
     Dosage: 3 ug, 1x/day
     Route: 061
     Dates: start: 20111209
  2. ALENIA [Concomitant]
     Indication: SMOKING CESSATION THERAPY
     Dosage: UNK
  3. CALDE [Concomitant]
     Indication: OSTEOPOROSIS
  4. SPIRIVA [Concomitant]
     Indication: SMOKING CESSATION THERAPY
     Dosage: UNK

REACTIONS (4)
  - Glaucoma [Unknown]
  - Visual acuity reduced [Recovered/Resolved]
  - Incorrect storage of drug [Recovered/Resolved]
  - Eye irritation [Recovered/Resolved]
